FAERS Safety Report 4704599-7 (Version None)
Quarter: 2005Q2

REPORT INFORMATION
  Report Type: 
  Country: None (occurrence: None)
  Receive Date: 20050630
  Receipt Date: 20050620
  Transmission Date: 20051028
  Serious: Yes (Other)
  Sender: FDA-Public Use
  Company Number: 2005091715

PATIENT
  Age: 60 Year
  Sex: Male
  Weight: 129.2752 kg

DRUGS (6)
  1. NEURONTIN [Suspect]
     Indication: DIABETIC NEUROPATHY
     Dosage: ORAL
     Route: 048
  2. MICARDIS [Concomitant]
  3. KLONOPIN [Concomitant]
  4. PROZAC [Concomitant]
  5. PROSCAR [Concomitant]
  6. FLOMAX ^BOEHRINGER INGELHEIM^ (TAMSULOSIN HYDROCHLORIDE) [Concomitant]

REACTIONS (5)
  - DRUG INEFFECTIVE [None]
  - DRUG TOLERANCE INCREASED [None]
  - GASTRIC BYPASS [None]
  - PROTEIN URINE PRESENT [None]
  - RENAL DISORDER [None]
